FAERS Safety Report 10174488 (Version 1)
Quarter: 2014Q2

REPORT INFORMATION
  Report Type: Spontaneous
  Country: US (occurrence: US)
  Receive Date: 20140515
  Receipt Date: 20140515
  Transmission Date: 20141212
  Serious: Yes (Other)
  Sender: FDA-Public Use
  Company Number: CHPA2014US006534

PATIENT
  Age: 42 Year
  Sex: Male

DRUGS (1)
  1. EXCEDRIN TENSION HEADACHE [Suspect]
     Indication: TENSION HEADACHE
     Dosage: 1-2 DF, UNK
     Route: 048

REACTIONS (1)
  - Liver function test abnormal [Unknown]
